FAERS Safety Report 10990694 (Version 4)
Quarter: 2016Q2

REPORT INFORMATION
  Report Type: Report from Study
  Country: US (occurrence: US)
  Receive Date: 20150406
  Receipt Date: 20160408
  Transmission Date: 20160815
  Serious: Yes (Other)
  Sender: FDA-Public Use
  Company Number: US-SA-2014SA092383

PATIENT
  Age: 70 Year
  Sex: Female

DRUGS (1)
  1. AUBAGIO [Suspect]
     Active Substance: TERIFLUNOMIDE
     Indication: MULTIPLE SCLEROSIS
     Route: 048
     Dates: start: 20140628

REACTIONS (9)
  - Hyperthyroidism [Unknown]
  - Hip fracture [Unknown]
  - Dry mouth [Unknown]
  - Dyspnoea [Unknown]
  - Nausea [Unknown]
  - Visual impairment [Unknown]
  - Hip arthroplasty [Unknown]
  - Fall [Not Recovered/Not Resolved]
  - Dry skin [Not Recovered/Not Resolved]

NARRATIVE: CASE EVENT DATE: 2014
